FAERS Safety Report 4270436-0 (Version None)
Quarter: 2004Q1

REPORT INFORMATION
  Report Type: 
  Country: None (occurrence: None)
  Receive Date: 20040113
  Receipt Date: 20040113
  Transmission Date: 20041129
  Serious: Yes (Life-Threatening, Hospitalization)
  Sender: FDA-Public Use
  Company Number: None

PATIENT
  Sex: Female
  Weight: 56.6996 kg

DRUGS (2)
  1. XELODA [Suspect]
     Dosage: 3 PILLS TWICE/DAY ORAL
     Route: 048
     Dates: start: 20031211, end: 20031222
  2. OXYPLATIN [Suspect]
     Dosage: INTRAVENOUS
     Route: 042
     Dates: start: 20031211, end: 20031211

REACTIONS (8)
  - DIARRHOEA [None]
  - FALL [None]
  - HAEMORRHAGE [None]
  - INFECTION [None]
  - NAUSEA [None]
  - PNEUMONIA [None]
  - THROMBOSIS [None]
  - VOMITING [None]
